FAERS Safety Report 25190981 (Version 1)
Quarter: 2025Q2

REPORT INFORMATION
  Report Type: Spontaneous
  Country: DE (occurrence: DE)
  Receive Date: 20250411
  Receipt Date: 20250411
  Transmission Date: 20250716
  Serious: Yes (Hospitalization, Other)
  Sender: ORGANON
  Company Number: None

PATIENT
  Age: 75 Year
  Sex: Male
  Weight: 64 kg

DRUGS (1)
  1. SIMVASTATIN [Suspect]
     Active Substance: SIMVASTATIN
     Indication: Hyperlipidaemia
     Dosage: 40MG 0-0-1
     Route: 048
     Dates: start: 202008, end: 20250307

REACTIONS (2)
  - Rhabdomyolysis [Not Recovered/Not Resolved]
  - Paraparesis [Unknown]

NARRATIVE: CASE EVENT DATE: 20250306
